FAERS Safety Report 7819926-1 (Version None)
Quarter: 2011Q4

REPORT INFORMATION
  Report Type: 
  Country: None (occurrence: None)
  Receive Date: 20111018
  Receipt Date: 20110525
  Transmission Date: 20120403
  Serious: No
  Sender: FDA-Public Use
  Company Number: US-ASTRAZENECA-2011SE32586

PATIENT
  Age: 564 Month
  Sex: Female

DRUGS (2)
  1. ALBUTEROL INHALER [Concomitant]
  2. SYMBICORT [Suspect]
     Indication: ASTHMA
     Dosage: 160/4.5 MCG TWO TIMES A DAY
     Route: 055
     Dates: start: 20100101

REACTIONS (7)
  - ASTHENIA [None]
  - FEELING COLD [None]
  - FEELING HOT [None]
  - PNEUMONIA [None]
  - CHILLS [None]
  - BARBITURATES POSITIVE [None]
  - HEADACHE [None]
